FAERS Safety Report 4603709-X (Version None)
Quarter: 2005Q1

REPORT INFORMATION
  Report Type: 
  Country: None (occurrence: None)
  Receive Date: 20050310
  Receipt Date: 20040614
  Transmission Date: 20050727
  Serious: Yes (Death, Hospitalization)
  Sender: FDA-Public Use
  Company Number: 200412349FR

PATIENT
  Age: 80 Year
  Sex: Male

DRUGS (3)
  1. RIFADIN [Suspect]
     Indication: BRONCHIAL INFECTION
     Route: 042
     Dates: start: 20040506, end: 20040511
  2. GENTAMICIN [Concomitant]
     Indication: BRONCHIAL INFECTION
     Dates: start: 20040501
  3. CALCIPARINE [Concomitant]

REACTIONS (8)
  - ACINETOBACTER INFECTION [None]
  - HYPERBILIRUBINAEMIA [None]
  - LUNG DISORDER [None]
  - PRODUCTIVE COUGH [None]
  - PULMONARY EMBOLISM [None]
  - SPUTUM CULTURE POSITIVE [None]
  - STAPHYLOCOCCAL INFECTION [None]
  - TACHYPNOEA [None]
